FAERS Safety Report 16713609 (Version 1)
Quarter: 2019Q3

REPORT INFORMATION
  Report Type: Spontaneous
  Country: PL (occurrence: PL)
  Receive Date: 20190819
  Receipt Date: 20190819
  Transmission Date: 20191004
  Serious: Yes (Other)
  Sender: FDA-Public Use
  Company Number: PL-ROCHE-2376849

PATIENT
  Age: 43 Year
  Sex: Male
  Weight: 88 kg

DRUGS (9)
  1. HASCOVIR [Concomitant]
     Indication: NON-HODGKIN^S LYMPHOMA
     Route: 048
     Dates: start: 20160720, end: 20160723
  2. ONDANSETRON KABI [Concomitant]
     Active Substance: ONDANSETRON
     Indication: NON-HODGKIN^S LYMPHOMA
     Dosage: 8MG/4ML
     Route: 065
     Dates: start: 20160720, end: 20160723
  3. BISEPTOL [Concomitant]
     Active Substance: SULFAMETHOXAZOLE\TRIMETHOPRIM
     Indication: NON-HODGKIN^S LYMPHOMA
     Route: 048
     Dates: start: 20160720, end: 20160723
  4. CLEXANE [Concomitant]
     Active Substance: ENOXAPARIN SODIUM
     Indication: NON-HODGKIN^S LYMPHOMA
     Dosage: 80 MG/0,8ML
     Route: 058
     Dates: start: 20160720, end: 20160723
  5. MABTHERA [Suspect]
     Active Substance: RITUXIMAB
     Indication: NON-HODGKIN^S LYMPHOMA
     Dosage: 10 MG/ML
     Route: 042
     Dates: start: 20160720, end: 20160723
  6. PARACETAMOL KABI [Concomitant]
     Active Substance: ACETAMINOPHEN
     Indication: NON-HODGKIN^S LYMPHOMA
     Route: 065
     Dates: start: 20160720, end: 20160723
  7. CORHYDRON [HYDROCORTISONE SODIUM SUCCINATE] [Concomitant]
     Indication: NON-HODGKIN^S LYMPHOMA
     Route: 040
     Dates: start: 20160720, end: 20160723
  8. SOLVERTYL [Concomitant]
     Indication: NON-HODGKIN^S LYMPHOMA
     Dosage: 50MG/2ML
     Route: 065
     Dates: start: 20160720, end: 20160723
  9. CLEMASTINE [Concomitant]
     Active Substance: CLEMASTINE
     Indication: NON-HODGKIN^S LYMPHOMA
     Dosage: 2 MG/2ML
     Route: 065
     Dates: start: 20160720, end: 20160723

REACTIONS (5)
  - Prolonged expiration [Recovered/Resolved]
  - Dyspnoea [Recovered/Resolved]
  - Chills [Recovered/Resolved]
  - Wheezing [Recovered/Resolved]
  - Anxiety [Recovered/Resolved]

NARRATIVE: CASE EVENT DATE: 20160722
